FAERS Safety Report 9684538 (Version 5)
Quarter: 2014Q1

REPORT INFORMATION
  Report Type: Spontaneous
  Country: DK (occurrence: GB)
  Receive Date: 20131112
  Receipt Date: 20140317
  Transmission Date: 20141002
  Serious: Yes (Death, Congenital Anomaly)
  Sender: FDA-Public Use
  Company Number: GB-FRI-1000051012

PATIENT
  Sex: Female

DRUGS (4)
  1. CITALOPRAM [Suspect]
     Dosage: 60 MG
     Route: 064
     Dates: start: 20040101
  2. CITALOPRAM [Suspect]
     Dosage: REDUCED TO 20 MG BY 15 WEEKS GESTATION
     Route: 064
  3. CO-CODAMOL [Concomitant]
  4. FOLIC ACID [Concomitant]

REACTIONS (13)
  - Foetal death [Fatal]
  - Congenital diaphragmatic eventration [Fatal]
  - Pulmonary hypoplasia [Fatal]
  - Congenital cleft hand [Not Recovered/Not Resolved]
  - Cutis laxa [Not Recovered/Not Resolved]
  - Skin swelling [Not Recovered/Not Resolved]
  - Cystic lymphangioma [Fatal]
  - Micrognathia [Unknown]
  - Bone deformity [Unknown]
  - Pyelocaliectasis [Unknown]
  - Dysmorphism [Unknown]
  - Foetal exposure during pregnancy [Fatal]
  - Overdose [Unknown]
